FAERS Safety Report 21175623 (Version 1)
Quarter: 2022Q3

REPORT INFORMATION
  Report Type: Other
  Country: US (occurrence: None)
  Receive Date: 20220805
  Receipt Date: 20220805
  Transmission Date: 20221026
  Serious: No
  Sender: FDA-Public Use
  Company Number: US-ROCHE-3155155

PATIENT
  Age: 26 Year
  Sex: Female
  Weight: 95.340 kg

DRUGS (5)
  1. OCREVUS [Suspect]
     Active Substance: OCRELIZUMAB
     Indication: Relapsing multiple sclerosis
     Route: 042
     Dates: start: 20220705
  2. LYSINE [Concomitant]
     Active Substance: LYSINE
     Indication: Herpes virus infection
     Route: 048
     Dates: start: 202207
  3. AVIANE [Concomitant]
     Active Substance: ETHINYL ESTRADIOL\LEVONORGESTREL
     Route: 048
  4. OMEGA 3 [Concomitant]
     Active Substance: CAPSAICIN
     Route: 048
     Dates: start: 202202
  5. MAGNESIUM [Concomitant]
     Active Substance: MAGNESIUM
     Route: 048
     Dates: start: 202202

REACTIONS (1)
  - COVID-19 [Recovered/Resolved]

NARRATIVE: CASE EVENT DATE: 20220718
